FAERS Safety Report 8276855-X (Version None)
Quarter: 2012Q2

REPORT INFORMATION
  Report Type: 
  Country: None (occurrence: None)
  Receive Date: 20120406
  Receipt Date: 20120330
  Transmission Date: 20120825
  Serious: Yes (Hospitalization, Other)
  Sender: FDA-Public Use
  Company Number: 2012SP009068

PATIENT
  Age: 42 Year
  Sex: Female

DRUGS (1)
  1. NUVARING [Suspect]
     Indication: PRODUCT USED FOR UNKNOWN INDICATION

REACTIONS (8)
  - BACK PAIN [None]
  - SEPTIC SHOCK [None]
  - ABDOMINAL PAIN UPPER [None]
  - UROSEPSIS [None]
  - DISSEMINATED INTRAVASCULAR COAGULATION [None]
  - PAIN IN EXTREMITY [None]
  - STREPTOCOCCAL SEPSIS [None]
  - VAGINAL INFLAMMATION [None]
